FAERS Safety Report 25184357 (Version 2)
Quarter: 2025Q2

REPORT INFORMATION
  Report Type: Report from Study
  Country: US (occurrence: US)
  Receive Date: 20250410
  Receipt Date: 20250527
  Transmission Date: 20250716
  Serious: Yes (Hospitalization)
  Sender: JOHNSON AND JOHNSON
  Company Number: US-JNJFOC-20250388332

PATIENT
  Age: 6 Decade
  Sex: Female

DRUGS (3)
  1. TREMFYA [Suspect]
     Active Substance: GUSELKUMAB
     Indication: Psoriasis
     Route: 058
     Dates: start: 20240409
  2. TREMFYA [Suspect]
     Active Substance: GUSELKUMAB
     Dosage: FREQUENCY: WEEK 0 (09-APR-2024), WEEK 4 (UNKNOWN) THEN EVERY 8 WEEKS (30-OCT-2024)
     Route: 058
     Dates: start: 20241030
  3. TREMFYA [Suspect]
     Active Substance: GUSELKUMAB
     Dosage: FREQUENCY: WEEK 0 (09-APR-2024), WEEK 4 (UNKNOWN) THEN EVERY 8 WEEKS (30-OCT-2024)
     Route: 058

REACTIONS (4)
  - COVID-19 pneumonia [Unknown]
  - Drug ineffective [Unknown]
  - Psoriasis [Not Recovered/Not Resolved]
  - Pain [Not Recovered/Not Resolved]
